FAERS Safety Report 9116993 (Version 2)
Quarter: 2013Q1

REPORT INFORMATION
  Report Type: Spontaneous
  Country: US (occurrence: US)
  Receive Date: 20130225
  Receipt Date: 20130318
  Transmission Date: 20140127
  Serious: No
  Sender: FDA-Public Use
  Company Number: US-PFIZER INC-2013066814

PATIENT
  Age: 38 Year
  Sex: Female

DRUGS (3)
  1. XELJANZ [Suspect]
     Indication: RHEUMATOID ARTHRITIS
     Dosage: 5 MG, 2X/DAY
     Route: 048
     Dates: start: 20130125, end: 20130207
  2. ARAVA [Concomitant]
     Indication: RHEUMATOID ARTHRITIS
     Dosage: 20 MG, 1X/DAY
     Route: 048
     Dates: start: 200201
  3. NORVASC [Concomitant]
     Indication: HYPERTENSION
     Dosage: 05 MG, 1X/DAY
     Route: 048
     Dates: start: 20120320

REACTIONS (1)
  - Headache [Recovered/Resolved]
